FAERS Safety Report 10595421 (Version 1)
Quarter: 2014Q4

REPORT INFORMATION
  Report Type: Spontaneous
  Country: US (occurrence: US)
  Receive Date: 20141120
  Receipt Date: 20141120
  Transmission Date: 20150529
  Serious: No
  Sender: FDA-Public Use
  Company Number: US-TEVA-487447USA

PATIENT
  Age: 62 Year
  Sex: Female

DRUGS (1)
  1. FOSINOPRIL [Suspect]
     Active Substance: FOSINOPRIL

REACTIONS (2)
  - Platelet disorder [Unknown]
  - Drug hypersensitivity [Unknown]
